FAERS Safety Report 6461919-3 (Version None)
Quarter: 2009Q4

REPORT INFORMATION
  Report Type: 
  Country: None (occurrence: None)
  Receive Date: 20091130
  Receipt Date: 20091126
  Transmission Date: 20100525
  Serious: Yes (Death, Other)
  Sender: FDA-Public Use
  Company Number: PHHY2009AR52258

PATIENT
  Sex: Female

DRUGS (1)
  1. ACLASTA [Suspect]
     Indication: HIP SURGERY
     Dosage: UNK
     Dates: start: 20081025

REACTIONS (2)
  - AORTIC OCCLUSION [None]
  - CARDIOPULMONARY FAILURE [None]
